FAERS Safety Report 9054752 (Version 1)
Quarter: 2013Q1

REPORT INFORMATION
  Report Type: Spontaneous
  Country: US (occurrence: US)
  Receive Date: 20130208
  Receipt Date: 20130208
  Transmission Date: 20140127
  Serious: Yes (Hospitalization)
  Sender: FDA-Public Use
  Company Number: US-PFIZER INC-2013051374

PATIENT
  Age: 54 Year
  Sex: Female
  Weight: 105 kg

DRUGS (7)
  1. NORVASC [Suspect]
     Indication: HYPERTENSION
     Dosage: 10 MG, 1X/DAY
     Route: 048
  2. LIPITOR [Suspect]
     Indication: BLOOD CHOLESTEROL INCREASED
     Dosage: 80 MG, 1X/DAY
     Route: 048
  3. PROPRANOLOL [Concomitant]
     Dosage: 80 MG, 1X/DAY
  4. ASPIRIN [Concomitant]
     Dosage: 81 MG, 1X/DAY
  5. PAXIL [Concomitant]
     Dosage: UNK, 1X/DAY
  6. NEXIUM [Concomitant]
     Dosage: UNK, 2X/DAY
  7. LISINOPRIL [Concomitant]
     Dosage: 2.5 MG, 1X/DAY

REACTIONS (2)
  - Gallbladder disorder [Recovered/Resolved]
  - Malaise [Recovered/Resolved]
